FAERS Safety Report 14256268 (Version 1)
Quarter: 2017Q4

REPORT INFORMATION
  Report Type: Not Available
  Country: FR (occurrence: FR)
  Receive Date: 20171206
  Receipt Date: 20171206
  Transmission Date: 20180321
  Serious: Yes (Death)
  Sender: FDA-Public Use
  Company Number: FR-ANIPHARMA-2017-FR-000080

PATIENT
  Age: 67 Year
  Sex: Female

DRUGS (4)
  1. BENZOIC ACID [Suspect]
     Active Substance: BENZOIC ACID
  2. INDAPAMIDE (NON-SPECIFIC) [Suspect]
     Active Substance: INDAPAMIDE
  3. ESCITALOPRAM [Suspect]
     Active Substance: ESCITALOPRAM OXALATE
  4. SOTALOL. [Suspect]
     Active Substance: SOTALOL

REACTIONS (3)
  - Cardiac arrest [Fatal]
  - Electrocardiogram QT prolonged [Fatal]
  - Death [Fatal]
